FAERS Safety Report 6822958-3 (Version None)
Quarter: 2010Q3

REPORT INFORMATION
  Report Type: 
  Country: None (occurrence: None)
  Receive Date: 20100708
  Receipt Date: 20100629
  Transmission Date: 20110219
  Serious: Yes (Death)
  Sender: FDA-Public Use
  Company Number: A0862427A

PATIENT
  Age: 53 Year
  Sex: Female
  Weight: 40.9 kg

DRUGS (2)
  1. TYKERB [Suspect]
     Indication: BREAST CANCER
     Dosage: 1250MG PER DAY
     Route: 048
     Dates: start: 20090710
  2. NAVELBINE [Concomitant]
     Dosage: 34MG WEEKLY
     Route: 042
     Dates: start: 20100317

REACTIONS (5)
  - DYSPNOEA EXERTIONAL [None]
  - HAEMATOCRIT DECREASED [None]
  - HAEMOGLOBIN DECREASED [None]
  - PULMONARY EMBOLISM [None]
  - TRANSFUSION [None]
